FAERS Safety Report 6569236-8 (Version None)
Quarter: 2010Q1

REPORT INFORMATION
  Report Type: 
  Country: None (occurrence: None)
  Receive Date: 20100201
  Receipt Date: 20100201
  Transmission Date: 20100710
  Serious: Yes (Life-Threatening, Hospitalization)
  Sender: FDA-Public Use
  Company Number: None

PATIENT
  Sex: Male

DRUGS (1)
  1. PEG-ASPARAGINASE ENZON PHARMACEUTICALS [Suspect]

REACTIONS (3)
  - CARDIAC ARREST [None]
  - CONTUSION [None]
  - SUBARACHNOID HAEMORRHAGE [None]
